FAERS Safety Report 14635670 (Version 1)
Quarter: 2018Q1

REPORT INFORMATION
  Report Type: Report from Study
  Country: ES (occurrence: ES)
  Receive Date: 20180314
  Receipt Date: 20180314
  Transmission Date: 20180509
  Serious: Yes (Hospitalization)
  Sender: FDA-Public Use
  Company Number: ES-PFIZER INC-2018096656

PATIENT
  Age: 3 Year
  Sex: Male

DRUGS (8)
  1. VINCRISTINE SULFATE. [Suspect]
     Active Substance: VINCRISTINE SULFATE
     Indication: ACUTE LYMPHOCYTIC LEUKAEMIA
     Dosage: 0.8 MG, WEEKLY
     Route: 042
     Dates: start: 20170828, end: 20170902
  2. CYTARABINE. [Suspect]
     Active Substance: CYTARABINE
     Indication: ACUTE LYMPHOCYTIC LEUKAEMIA
     Dosage: 2074 MG, 1X/DAY
     Route: 042
     Dates: start: 20170901, end: 20170901
  3. DEXAMETHASONE. [Suspect]
     Active Substance: DEXAMETHASONE
     Indication: ACUTE LYMPHOCYTIC LEUKAEMIA
     Dosage: 5.2 MG, 2X/DAY (EVERY 12 HOURS)
     Route: 042
     Dates: start: 20170828, end: 20170901
  4. CYCLOPHOSPHAMID [Suspect]
     Active Substance: CYCLOPHOSPHAMIDE
     Indication: ACUTE LYMPHOCYTIC LEUKAEMIA
     Dosage: 518.5 MG, 3X/DAY
     Route: 042
     Dates: start: 20170830, end: 20170901
  5. MESNA. [Suspect]
     Active Substance: MESNA
     Indication: PROPHYLAXIS
     Dosage: 544.5 MG, 3X/DAY
     Route: 042
     Dates: start: 20170830, end: 20170901
  6. ZOVIRAX [Concomitant]
     Active Substance: ACYCLOVIR
     Indication: OPPORTUNISTIC INFECTION PROPHYLAXIS
     Dosage: 120 MG, 3X/DAY (EVERY 8 HOURS)
     Route: 048
     Dates: start: 20170307
  7. SEPTRIN PAEDIATRIC [Concomitant]
     Active Substance: SULFAMETHOXAZOLE\TRIMETHOPRIM
     Indication: OPPORTUNISTIC INFECTION PROPHYLAXIS
     Dosage: 4 MG, 2X/DAY (EVERY 12 HOURS)
     Route: 048
     Dates: start: 20170307
  8. METHOTREXATE SODIUM. [Suspect]
     Active Substance: METHOTREXATE SODIUM
     Indication: ACUTE LYMPHOCYTIC LEUKAEMIA
     Dosage: 2592 MG, 1X/DAY
     Route: 042
     Dates: start: 20170828, end: 20170829

REACTIONS (4)
  - Clostridium difficile infection [Recovered/Resolved]
  - Hepatitis [Recovered/Resolved]
  - Abdominal sepsis [Recovered/Resolved]
  - Pancytopenia [Recovered/Resolved]

NARRATIVE: CASE EVENT DATE: 20170903
